FAERS Safety Report 9722490 (Version 1)
Quarter: 2013Q4

REPORT INFORMATION
  Report Type: Spontaneous
  Country: US (occurrence: US)
  Receive Date: 20131202
  Receipt Date: 20131202
  Transmission Date: 20140711
  Serious: Yes (Hospitalization, Other)
  Sender: FDA-Public Use
  Company Number: US-BAYER-2013-143037

PATIENT
  Age: 82 Year
  Sex: Female
  Weight: 48.53 kg

DRUGS (7)
  1. BAYER ASPIRIN REGIMEN ADULT LOW STRENGTH [Suspect]
     Indication: ISCHAEMIC HEART DISEASE PROPHYLAXIS
     Dosage: 1 DF, QD
     Route: 048
  2. BAYER ASPIRIN REGIMEN ADULT LOW STRENGTH [Interacting]
     Indication: ISCHAEMIC HEART DISEASE PROPHYLAXIS
     Dosage: 1 DF, TIW
     Route: 048
     Dates: start: 20131105
  3. COUMADIN [Interacting]
     Dosage: UNK
     Dates: start: 201110, end: 201110
  4. TORADOL [Concomitant]
     Dosage: UNK
     Dates: start: 201110, end: 201110
  5. SYNTHROID [Concomitant]
  6. NORPACE [Concomitant]
     Indication: ATRIAL FIBRILLATION
     Dosage: UNK
     Dates: start: 1990, end: 201112
  7. COZAAR [Concomitant]

REACTIONS (10)
  - Road traffic accident [None]
  - Musculoskeletal pain [None]
  - Atrial fibrillation [None]
  - Blood disorder [None]
  - Staphylococcal infection [None]
  - Urinary tract infection enterococcal [None]
  - Myocardial infarction [Recovered/Resolved]
  - Dizziness [Not Recovered/Not Resolved]
  - Head discomfort [Not Recovered/Not Resolved]
  - Labelled drug-drug interaction medication error [None]
